FAERS Safety Report 9156799 (Version 1)
Quarter: 2013Q1

REPORT INFORMATION
  Report Type: Spontaneous
  Country: US (occurrence: US)
  Receive Date: 20130312
  Receipt Date: 20130312
  Transmission Date: 20140127
  Serious: Yes (Hospitalization, Other)
  Sender: FDA-Public Use
  Company Number: US-BAYER-2013-027951

PATIENT
  Age: 35 Year
  Sex: Female
  Weight: 54.88 kg

DRUGS (10)
  1. YAZ [Suspect]
  2. YASMIN [Suspect]
  3. OCELLA [Suspect]
  4. ASPIRIN [Concomitant]
     Dosage: 325 MG, DAILY
     Route: 048
  5. LAMICTAL [Concomitant]
     Dosage: 75 MG Q.A.M. (INTERPRETED AS EVERY MORNING), 50 MG Q.H.S. (INTERPRETED AS EVERY BEDTIME
     Route: 048
  6. PERCOCET [Concomitant]
     Dosage: 5/325 MG Q (INTERPRETED AS EVERY) 6 HOURS AS NEEDED
     Route: 048
  7. XANAX [Concomitant]
     Dosage: 1 MG, DAILY AS NEEDED
     Route: 048
  8. VICODIN [Concomitant]
     Dosage: 2 TABLETS EVERY 4 HOURS
  9. ZANTAC [Concomitant]
     Dosage: P.R.N. (INTERPRETED AS- AS NEEDED)
  10. ATIVAN [Concomitant]

REACTIONS (2)
  - Pulmonary embolism [Recovered/Resolved]
  - Deep vein thrombosis [None]
